FAERS Safety Report 8535564-X (Version None)
Quarter: 2012Q3

REPORT INFORMATION
  Report Type: 
  Country: None (occurrence: None)
  Receive Date: 20120725
  Receipt Date: 20120719
  Transmission Date: 20120928
  Serious: Yes (Death)
  Sender: FDA-Public Use
  Company Number: US-CELGENEUS-163-21880-12063359

PATIENT
  Sex: Female
  Weight: 62.652 kg

DRUGS (16)
  1. CALCIUM [Concomitant]
     Dosage: 500 MILLIGRAM
     Route: 048
  2. METOPROLOL TARTRATE [Concomitant]
     Dosage: 25 MILLILITER
     Route: 048
  3. TRAZODONE HCL [Concomitant]
     Dosage: 50 MILLIGRAM
     Route: 048
  4. ZOMETA [Concomitant]
     Dosage: 4 MILLIGRAM
     Route: 041
  5. REVLIMID [Suspect]
     Dosage: 15 MILLIGRAM
     Route: 048
     Dates: start: 20110301
  6. DEXAMETHASONE [Concomitant]
     Dosage: 4 MILLIGRAM
     Route: 048
  7. LANTUS [Concomitant]
     Dosage: 20 UNIT / 10 UNIT
     Route: 058
  8. PROCHLORPERAZINE MALEATE [Concomitant]
     Indication: NAUSEA
     Dosage: 10 MILLIGRAM
     Route: 048
  9. REVLIMID [Suspect]
     Indication: MULTIPLE MYELOMA
     Dosage: 15 MILLIGRAM
     Route: 048
     Dates: start: 20081209
  10. ASPIRIN [Concomitant]
     Dosage: 81 MILLIGRAM
     Route: 048
  11. KLOR-CON [Concomitant]
     Dosage: 10 MILLIEQUIVALENTS
     Route: 048
  12. OMEPRAZOLE [Concomitant]
     Dosage: 20 MILLIGRAM
     Route: 048
  13. PREDNISONE [Concomitant]
     Dosage: 20 MILLIGRAM
     Route: 048
  14. SENNA-MINT WAF [Concomitant]
     Dosage: 8.6 MILLIGRAM
     Route: 048
  15. AMOXICILLIN [Concomitant]
     Dosage: 500 MILLIGRAM
     Route: 048
  16. MEGACE [Concomitant]
     Dosage: 10 MILLILITER
     Route: 048

REACTIONS (1)
  - MULTIPLE MYELOMA [None]
